FAERS Safety Report 23944749 (Version 2)
Quarter: 2024Q2

REPORT INFORMATION
  Report Type: Spontaneous
  Country: US (occurrence: US)
  Receive Date: 20240606
  Receipt Date: 20240606
  Transmission Date: 20240716
  Serious: Yes (Death, Life-Threatening, Hospitalization, Other)
  Sender: FDA-Public Use
  Company Number: US-GILEAD-2024-0675159

PATIENT
  Age: 44 Year
  Sex: Female
  Weight: 108 kg

DRUGS (4)
  1. HARVONI [Suspect]
     Active Substance: LEDIPASVIR\SOFOSBUVIR
     Indication: Hepatitis C
     Dosage: UNK
     Route: 065
  2. PEGASYS [Suspect]
     Active Substance: PEGINTERFERON ALFA-2A
     Indication: Hepatitis C
     Dosage: UNK
     Route: 058
     Dates: start: 2015
  3. RIBAVIRIN [Concomitant]
     Active Substance: RIBAVIRIN
     Dosage: UNK
  4. CANNABIS SATIVA FLOWERING TOP [Concomitant]
     Active Substance: CANNABIS SATIVA FLOWERING TOP

REACTIONS (5)
  - Amenorrhoea [Fatal]
  - Maternal drugs affecting foetus [Fatal]
  - Lack of prenatal care [Fatal]
  - Foetal death [Fatal]
  - Maternal exposure during pregnancy [Recovered/Resolved]
